FAERS Safety Report 16451780 (Version 1)
Quarter: 2019Q2

REPORT INFORMATION
  Report Type: Spontaneous
  Country: DE (occurrence: DE)
  Receive Date: 20190619
  Receipt Date: 20190619
  Transmission Date: 20190711
  Serious: Yes (Other)
  Sender: FDA-Public Use
  Company Number: PHHY2019DE137969

PATIENT
  Age: 57 Year
  Sex: Female
  Weight: 80 kg

DRUGS (1)
  1. IBUPROFEN. [Suspect]
     Active Substance: IBUPROFEN
     Indication: BACK PAIN
     Dosage: 400 MG (TOTAL)
     Route: 048
     Dates: start: 20181216, end: 20181216

REACTIONS (9)
  - Anaphylactic shock [Recovered/Resolved]
  - Swollen tongue [Recovered/Resolved]
  - Blood pressure decreased [Recovered/Resolved]
  - Lip swelling [Recovered/Resolved]
  - Pruritus generalised [Recovered/Resolved]
  - Paraesthesia [Recovered/Resolved]
  - Circulatory collapse [Recovered/Resolved]
  - Language disorder [Recovered/Resolved]
  - Generalised erythema [Recovered/Resolved]

NARRATIVE: CASE EVENT DATE: 20181216
